APPROVED DRUG PRODUCT: RIZATRIPTAN BENZOATE
Active Ingredient: RIZATRIPTAN BENZOATE
Strength: EQ 5MG BASE
Dosage Form/Route: TABLET;ORAL
Application: A202244 | Product #001
Applicant: APOTEX INC
Approved: Dec 31, 2012 | RLD: No | RS: No | Type: DISCN